FAERS Safety Report 20505435 (Version 12)
Quarter: 2025Q3

REPORT INFORMATION
  Report Type: Spontaneous
  Country: EU (occurrence: EU)
  Receive Date: 20220223
  Receipt Date: 20250908
  Transmission Date: 20251021
  Serious: Yes (Death, Other)
  Sender: AUROBINDO
  Company Number: EU-PFIZER INC-202200150737

PATIENT
  Age: 40 Year
  Sex: Female

DRUGS (14)
  1. DIAZEPAM [Suspect]
     Active Substance: DIAZEPAM
     Indication: Substance use
     Route: 065
  2. OXOMEMAZINE [Suspect]
     Active Substance: OXOMEMAZINE
     Indication: Substance use
     Route: 065
  3. PREGABALIN [Suspect]
     Active Substance: PREGABALIN
     Indication: Pain
     Route: 065
  4. TRAMADOL [Suspect]
     Active Substance: TRAMADOL
     Indication: Product used for unknown indication
     Route: 065
  5. NORDAZEPAM [Suspect]
     Active Substance: NORDAZEPAM
     Indication: Substance use
     Route: 065
  6. LYRICA [Suspect]
     Active Substance: PREGABALIN
     Indication: Pain
     Route: 065
  7. OXAZEPAM [Suspect]
     Active Substance: OXAZEPAM
     Indication: Substance use
     Route: 065
  8. PHOLCODINE [Suspect]
     Active Substance: PHOLCODINE
     Indication: Substance use
     Route: 065
  9. TRAMADOL HYDROCHLORIDE [Suspect]
     Active Substance: TRAMADOL HYDROCHLORIDE
     Indication: Substance use
     Route: 065
  10. INSULIN DETEMIR [Concomitant]
     Active Substance: INSULIN DETEMIR
     Indication: Type 1 diabetes mellitus
     Route: 065
  11. LORMETAZEPAM [Concomitant]
     Active Substance: LORMETAZEPAM
     Indication: Product used for unknown indication
     Route: 065
  12. OMEPRAZOLE [Concomitant]
     Active Substance: OMEPRAZOLE
     Indication: Product used for unknown indication
     Route: 065
  13. SITAGLIPTIN [Concomitant]
     Active Substance: SITAGLIPTIN
     Indication: Type 1 diabetes mellitus
     Route: 065
  14. TRAMADOL [Concomitant]
     Active Substance: TRAMADOL
     Indication: Product used for unknown indication
     Route: 065

REACTIONS (9)
  - Death [Fatal]
  - Poisoning [Fatal]
  - Substance abuse [Fatal]
  - Toxicity to various agents [Fatal]
  - Drug abuse [Fatal]
  - Lung disorder [Fatal]
  - Intentional overdose [Fatal]
  - Intentional product misuse [Fatal]
  - Drug level above therapeutic [Unknown]
